FAERS Safety Report 9458514 (Version 1)
Quarter: 2013Q3

REPORT INFORMATION
  Report Type: Spontaneous
  Country: US (occurrence: None)
  Receive Date: 20130813
  Receipt Date: 20130813
  Transmission Date: 20140515
  Serious: Yes (Hospitalization)
  Sender: FDA-Public Use
  Company Number: None

PATIENT
  Age: 68 Year
  Sex: Male

DRUGS (4)
  1. ZYTIGA [Suspect]
     Indication: PROSTATE CANCER
     Dosage: 1000MG QD ORAL
     Route: 048
  2. ZYTIGA [Suspect]
     Indication: PROSTATECTOMY
     Dosage: 1000MG QD ORAL
     Route: 048
  3. PREDNISONE [Concomitant]
  4. ASPIRIN [Concomitant]

REACTIONS (2)
  - Atrial fibrillation [None]
  - Chest pain [None]
